FAERS Safety Report 10975027 (Version 4)
Quarter: 2016Q3

REPORT INFORMATION
  Report Type: Spontaneous
  Country: US (occurrence: US)
  Receive Date: 20150401
  Receipt Date: 20160712
  Transmission Date: 20161109
  Serious: No
  Sender: FDA-Public Use
  Company Number: US-009507513-1503USA015009

PATIENT
  Sex: Male

DRUGS (1)
  1. PROPECIA [Suspect]
     Active Substance: FINASTERIDE
     Indication: ANDROGENETIC ALOPECIA
     Dosage: 1 MG, UNK
     Route: 048
     Dates: start: 20000708, end: 20100315

REACTIONS (12)
  - Sexual dysfunction [Not Recovered/Not Resolved]
  - Organic erectile dysfunction [Not Recovered/Not Resolved]
  - Knee operation [Unknown]
  - Urine flow decreased [Unknown]
  - Benign prostatic hyperplasia [Unknown]
  - Micturition urgency [Unknown]
  - Vasectomy [Unknown]
  - Libido decreased [Not Recovered/Not Resolved]
  - Peyronie^s disease [Not Recovered/Not Resolved]
  - Benign prostatic hyperplasia [Not Recovered/Not Resolved]
  - Nocturia [Unknown]
  - Ankle operation [Unknown]

NARRATIVE: CASE EVENT DATE: 200302
